FAERS Safety Report 10566847 (Version 4)
Quarter: 2014Q4

REPORT INFORMATION
  Report Type: Spontaneous
  Country: NL (occurrence: NL)
  Receive Date: 20141105
  Receipt Date: 20141218
  Transmission Date: 20150529
  Serious: Yes (Other)
  Sender: FDA-Public Use
  Company Number: NL-BAXTER-2014BAX065142

PATIENT
  Age: 4 Year
  Sex: Female
  Weight: 13.3 kg

DRUGS (2)
  1. TISSUCOL [Suspect]
     Active Substance: FIBRINOGEN HUMAN\THROMBIN HUMAN
     Indication: CARDIAC OPERATION
     Route: 065
  2. TISSUCOL [Suspect]
     Active Substance: FIBRINOGEN HUMAN\THROMBIN HUMAN
     Indication: HAEMOSTASIS
     Route: 065

REACTIONS (4)
  - Vascular pseudoaneurysm [Unknown]
  - Cardiac procedure complication [Recovered/Resolved]
  - Right ventricular systolic pressure increased [Unknown]
  - Post procedural haemorrhage [Recovered/Resolved]
